FAERS Safety Report 8187533-X (Version None)
Quarter: 2012Q1

REPORT INFORMATION
  Report Type: 
  Country: None (occurrence: None)
  Receive Date: 20120302
  Receipt Date: 20120220
  Transmission Date: 20120608
  Serious: Yes (Hospitalization)
  Sender: FDA-Public Use
  Company Number: 1206093

PATIENT
  Age: 56 Year
  Sex: Female

DRUGS (1)
  1. MORPHINE SULFATE [Suspect]
     Indication: BACK PAIN
     Dosage: INTRATHECAL
     Route: 037

REACTIONS (7)
  - NERVOUS SYSTEM DISORDER [None]
  - SENSORY DISTURBANCE [None]
  - ARACHNOID CYST [None]
  - DRUG EFFECT DECREASED [None]
  - PARAPARESIS [None]
  - PAIN [None]
  - SPINAL CORD COMPRESSION [None]
